FAERS Safety Report 15984305 (Version 1)
Quarter: 2019Q1

REPORT INFORMATION
  Report Type: Spontaneous
  Country: US (occurrence: US)
  Receive Date: 20190219
  Receipt Date: 20190219
  Transmission Date: 20190418
  Serious: Yes (Life-Threatening)
  Sender: FDA-Public Use
  Company Number: None

PATIENT
  Age: 33 Year
  Sex: Male
  Weight: 56.6 kg

DRUGS (1)
  1. DASATINIB. [Suspect]
     Active Substance: DASATINIB
     Indication: ACUTE LYMPHOCYTIC LEUKAEMIA
     Route: 048
     Dates: start: 20180202, end: 20190110

REACTIONS (5)
  - Pleural decortication [None]
  - Haemothorax [None]
  - Pneumothorax [None]
  - Post procedural complication [None]
  - Device leakage [None]

NARRATIVE: CASE EVENT DATE: 20190110
